FAERS Safety Report 5721600-2 (Version None)
Quarter: 2008Q2

REPORT INFORMATION
  Report Type: 
  Country: None (occurrence: None)
  Receive Date: 20080424
  Receipt Date: 20080411
  Transmission Date: 20081010
  Serious: Yes (Other)
  Sender: FDA-Public Use
  Company Number: S08-IRL-00489-01

PATIENT
  Age: 81 Year
  Sex: Male

DRUGS (5)
  1. CITALOPRAM HYDROBROMIDE [Suspect]
  2. ZOLPIDEM [Suspect]
  3. ASPIRIN [Concomitant]
  4. PROTON PUMP INHIBITOR (NOS) [Concomitant]
  5. OXYCONTIN [Concomitant]

REACTIONS (3)
  - DYSARTHRIA [None]
  - ILL-DEFINED DISORDER [None]
  - MEMORY IMPAIRMENT [None]
